FAERS Safety Report 21445880 (Version 2)
Quarter: 2023Q1

REPORT INFORMATION
  Report Type: Spontaneous
  Country: US (occurrence: US)
  Receive Date: 20221012
  Receipt Date: 20230108
  Transmission Date: 20230418
  Serious: Yes (Other)
  Sender: FDA-Public Use
  Company Number: US-BRISTOL-MYERS SQUIBB COMPANY-2022-117529

PATIENT
  Age: 62 Year
  Sex: Female

DRUGS (5)
  1. NIVOLUMAB [Suspect]
     Active Substance: NIVOLUMAB
     Indication: Appendix cancer
     Dosage: DOSE : OP: 153.6 MG | YER: 51.2 MG;     FREQ : OPDIVO: EVERY 3 WEEKS?YERVOY: EVERY 3 WEEKS.
     Route: 042
  2. IPILIMUMAB [Suspect]
     Active Substance: IPILIMUMAB
     Indication: Appendix cancer
     Dosage: DOSE : OP: 153.6 MG | YER: 51.2 MG;     FREQ : OPDIVO: EVERY 3 WEEKS?YERVOY: EVERY 3 WEEKS.
     Route: 042
  3. GABAPENTIN [Concomitant]
     Active Substance: GABAPENTIN
  4. OXYCODONE [Concomitant]
     Active Substance: OXYCODONE
  5. LIDOCAINE [Concomitant]
     Active Substance: LIDOCAINE

REACTIONS (2)
  - Malignant neoplasm progression [Unknown]
  - Off label use [Unknown]

NARRATIVE: CASE EVENT DATE: 20221004
